FAERS Safety Report 17012781 (Version 2)
Quarter: 2020Q1

REPORT INFORMATION
  Report Type: Spontaneous
  Country: US (occurrence: US)
  Receive Date: 20191109
  Receipt Date: 20200122
  Transmission Date: 20200409
  Serious: Yes (Other)
  Sender: FDA-Public Use
  Company Number: US-BRISTOL-MYERS SQUIBB COMPANY-BMS-2019-104836

PATIENT
  Sex: Female
  Weight: 68.03 kg

DRUGS (1)
  1. OPDIVO [Suspect]
     Active Substance: NIVOLUMAB
     Indication: MALIGNANT MELANOMA
     Dosage: UNK UNK, Q2WK
     Route: 042
     Dates: end: 201910

REACTIONS (5)
  - Muscular weakness [Unknown]
  - Nervous system disorder [Unknown]
  - Visual impairment [Unknown]
  - Melanoma recurrent [Unknown]
  - Platelet count decreased [Unknown]
